FAERS Safety Report 23236396 (Version 1)
Quarter: 2023Q4

REPORT INFORMATION
  Report Type: Spontaneous
  Country: US (occurrence: US)
  Receive Date: 20231128
  Receipt Date: 20231128
  Transmission Date: 20240109
  Serious: Yes (Hospitalization)
  Sender: FDA-Public Use
  Company Number: US-JNJFOC-20231157785

PATIENT
  Sex: Female

DRUGS (1)
  1. APALUTAMIDE [Suspect]
     Active Substance: APALUTAMIDE
     Indication: Accidental exposure to product
     Route: 065

REACTIONS (3)
  - Seizure [Unknown]
  - Muscle spasms [Unknown]
  - Accidental exposure to product [Unknown]
